FAERS Safety Report 11889274 (Version 2)
Quarter: 2016Q1

REPORT INFORMATION
  Report Type: Report from Study
  Country: ES (occurrence: ES)
  Receive Date: 20160105
  Receipt Date: 20160120
  Transmission Date: 20160526
  Serious: Yes (Death)
  Sender: FDA-Public Use
  Company Number: ES-PFIZER INC-2016000228

PATIENT

DRUGS (4)
  1. IRINOTECAN HCL [Suspect]
     Active Substance: IRINOTECAN HYDROCHLORIDE
     Indication: GLIOBLASTOMA
     Dosage: 100 MG/M2, CYCLIC (ON DAYS 8 AND 22 OF 28-DAY CYCLES)
     Route: 042
  2. TEMOZOLOMIDE. [Suspect]
     Active Substance: TEMOZOLOMIDE
     Dosage: 100 MG/M2, SINGLE (BETWEEN 3 AND 6 H BEFORE EVERY IRINOTECAN INFUSION)
     Route: 048
  3. ATROPINE. [Concomitant]
     Active Substance: ATROPINE
     Dosage: 0.25 MG, UNK
     Route: 058
  4. TEMOZOLOMIDE. [Suspect]
     Active Substance: TEMOZOLOMIDE
     Indication: GLIOBLASTOMA
     Dosage: 50 MG/M2, DAILY
     Route: 048

REACTIONS (1)
  - Pulmonary embolism [Fatal]
